FAERS Safety Report 14517516 (Version 4)
Quarter: 2018Q2

REPORT INFORMATION
  Report Type: Spontaneous
  Country: IT (occurrence: IT)
  Receive Date: 20180212
  Receipt Date: 20180615
  Transmission Date: 20180711
  Serious: Yes (Other)
  Sender: FDA-Public Use
  Company Number: IT-ROCHE-2065997

PATIENT
  Age: 4 Year
  Sex: Male
  Weight: 14 kg

DRUGS (1)
  1. RIVOTRIL [Suspect]
     Active Substance: CLONAZEPAM
     Indication: CLONUS
     Dosage: UNIT DOSE: 15 DROPS?STRENGTH: 2.5 MG/ML.
     Route: 048
     Dates: start: 20171203, end: 20171203

REACTIONS (3)
  - Sopor [Recovered/Resolved]
  - Medication error [Unknown]
  - Hypotonia [Recovered/Resolved]

NARRATIVE: CASE EVENT DATE: 20171203
